FAERS Safety Report 18605198 (Version 1)
Quarter: 2020Q4

REPORT INFORMATION
  Report Type: Report from Study
  Country: GB (occurrence: GB)
  Receive Date: 20201211
  Receipt Date: 20201211
  Transmission Date: 20210114
  Serious: Yes (Death)
  Sender: FDA-Public Use
  Company Number: GB-PFIZER INC-2020488511

PATIENT
  Age: 39 Year
  Sex: Male

DRUGS (5)
  1. PREGABALIN. [Suspect]
     Active Substance: PREGABALIN
     Dosage: UNK
  2. ETIZOLAM [Suspect]
     Active Substance: ETIZOLAM
     Dosage: UNK
     Route: 048
  3. AMITRIPTYLINE [Suspect]
     Active Substance: AMITRIPTYLINE
     Dosage: UNK
  4. COCAINE [Suspect]
     Active Substance: COCAINE
     Dosage: UNK
  5. METHADONE [Suspect]
     Active Substance: METHADONE HYDROCHLORIDE
     Dosage: UNK

REACTIONS (2)
  - Drug abuse [Fatal]
  - Toxicity to various agents [Fatal]
